FAERS Safety Report 14787408 (Version 3)
Quarter: 2022Q1

REPORT INFORMATION
  Report Type: Spontaneous
  Country: ES (occurrence: ES)
  Receive Date: 20180421
  Receipt Date: 20220309
  Transmission Date: 20220423
  Serious: Yes (Disabling, Other)
  Sender: FDA-Public Use
  Company Number: ES-AUROBINDO-AUR-APL-2018-020809

PATIENT
  Age: 40 Year
  Sex: Female

DRUGS (8)
  1. LEVOFLOXACIN [Suspect]
     Active Substance: LEVOFLOXACIN
     Indication: Upper respiratory tract infection
     Dosage: 500 MILLIGRAM, TWO TIMES A DAY
     Route: 065
  2. METHYLPREDNISOLONE [Interacting]
     Active Substance: METHYLPREDNISOLONE
     Indication: Polymyositis
     Dosage: 20 MILLIGRAM, ONCE A DAY
     Route: 065
     Dates: start: 20110701
  3. METHYLPREDNISOLONE [Interacting]
     Active Substance: METHYLPREDNISOLONE
     Indication: Antisynthetase syndrome
     Dosage: UNK
     Route: 065
  4. ESCITALOPRAM [Concomitant]
     Active Substance: ESCITALOPRAM OXALATE
     Indication: Depression
     Dosage: 10 MILLIGRAM, ONCE A DAY
     Route: 065
     Dates: start: 20110401
  5. IBANDRONATE SODIUM [Concomitant]
     Active Substance: IBANDRONATE SODIUM
     Indication: Polymyositis
     Dosage: 150 MILLIGRAM, ONCE A DAY
     Route: 065
     Dates: start: 20110701
  6. IBANDRONATE SODIUM [Concomitant]
     Active Substance: IBANDRONATE SODIUM
     Indication: Antisynthetase syndrome
     Dosage: UNK
     Route: 065
  7. CYCLOSPORINE [Concomitant]
     Active Substance: CYCLOSPORINE
     Indication: Polymyositis
     Dosage: 100 MILLIGRAM, TWO TIMES A DAY
     Route: 065
     Dates: start: 20110701
  8. CYCLOSPORINE [Concomitant]
     Active Substance: CYCLOSPORINE
     Indication: Antisynthetase syndrome
     Dosage: UNK
     Route: 065

REACTIONS (6)
  - Haemarthrosis [Recovering/Resolving]
  - Tendon rupture [Recovering/Resolving]
  - Tendon disorder [Recovering/Resolving]
  - Swelling [Recovering/Resolving]
  - Tendon pain [Recovering/Resolving]
  - Gait inability [Recovering/Resolving]
